FAERS Safety Report 11264220 (Version 2)
Quarter: 2015Q3

REPORT INFORMATION
  Report Type: Spontaneous
  Country: JP (occurrence: None)
  Receive Date: 20150709
  Receipt Date: 20150727
  Transmission Date: 20151125
  Serious: Yes (Other)
  Sender: FDA-Public Use
  Company Number: 2015RN000033

PATIENT
  Age: 80 Year
  Sex: Female

DRUGS (10)
  1. SERETIDE DISCUS (FLUTICASONE PROPIONATE, SALMETEROL XINAFOATE) [Concomitant]
  2. RENAGEL (SEVELAMER HYDROCHLORIDE) [Concomitant]
  3. CALCIUM CARBONATE. [Concomitant]
     Active Substance: CALCIUM CARBONATE
  4. ALFAROL [Concomitant]
     Active Substance: ALFACALCIDOL
  5. ZOVIRAX [Suspect]
     Active Substance: ACYCLOVIR
     Indication: OPHTHALMIC HERPES ZOSTER
     Route: 048
     Dates: start: 20150620, end: 20150621
  6. WARFARIN [Concomitant]
     Active Substance: WARFARIN
  7. FLUCONAZOLE. [Concomitant]
     Active Substance: FLUCONAZOLE
  8. KAYEXALATE [Concomitant]
     Active Substance: SODIUM POLYSTYRENE SULFONATE
  9. LENDORMIN (BROTIZOLAM) [Concomitant]
  10. AMLODIPINE [Concomitant]
     Active Substance: AMLODIPINE BESYLATE

REACTIONS (3)
  - Neurosis [None]
  - Hallucination, visual [None]
  - Hallucination [None]

NARRATIVE: CASE EVENT DATE: 20150621
